FAERS Safety Report 6671904-4 (Version None)
Quarter: 2010Q2

REPORT INFORMATION
  Report Type: 
  Country: None (occurrence: None)
  Receive Date: 20100407
  Receipt Date: 20100326
  Transmission Date: 20101027
  Serious: Yes (Other)
  Sender: FDA-Public Use
  Company Number: US-PFIZER INC-2010039134

PATIENT
  Sex: Female
  Weight: 70 kg

DRUGS (4)
  1. CHANTIX [Suspect]
     Indication: SMOKING CESSATION THERAPY
     Dosage: 0.5 MG, 1X/DAY
     Dates: start: 20100201, end: 20100304
  2. NORVASC [Suspect]
     Indication: HYPERTENSION
     Dosage: 5 MG, 1X/DAY
     Dates: end: 20100316
  3. AVALIDE [Suspect]
     Indication: HYPERTENSION
     Dosage: 300/12.5
     Dates: end: 20100316
  4. CLINDAMYCIN HYDROCHLORIDE [Suspect]
     Indication: OSTEITIS
     Dosage: 300 MG, UNK
     Dates: start: 20100101

REACTIONS (2)
  - OSTEOMYELITIS [None]
  - RASH [None]
